FAERS Safety Report 5179401-2 (Version None)
Quarter: 2006Q4

REPORT INFORMATION
  Report Type: 
  Country: None (occurrence: None)
  Receive Date: 20061211
  Receipt Date: 20061127
  Transmission Date: 20070319
  Serious: Yes (Hospitalization)
  Sender: FDA-Public Use
  Company Number: T200600950

PATIENT
  Age: 67 Year
  Sex: Male

DRUGS (14)
  1. METAHDOSE ORAL CONCENTRATE (METHADONE HYDROCHLORIDE) SYRUP, 10MG/ML [Suspect]
     Indication: PAIN
     Dosage: ORAL
     Route: 048
     Dates: start: 20060517, end: 20060524
  2. SU 11248(SUNITINIB MALATE) 50MG [Suspect]
     Indication: METASTATIC RENAL CELL CARCINOMA
     Dosage: 50 MG,DAILY FOR 4 WEEKS ON, 2 WEEKS OFF
     Dates: start: 20060502, end: 20060524
  3. DICLOFENAC (DICLOFENAC) [Concomitant]
  4. METFORMIN HCL [Concomitant]
  5. ENALAPRIL MALEATE [Concomitant]
  6. SELOKEEN (METOPROLOL TARTRATE) [Concomitant]
  7. NORVASC [Concomitant]
  8. PANTOZOL (PANTOPRAZOLE SODIUM) [Concomitant]
  9. ASCAL (ACETYLSALICYLATE CALCIUM) [Concomitant]
  10. LACTULOSE [Concomitant]
  11. DURAGESIC-100 [Concomitant]
  12. PRIMPERAN TAB [Concomitant]
  13. PRAVASTATIN [Concomitant]
  14. OXYCODONE HCL [Concomitant]

REACTIONS (6)
  - BLOOD GLUCOSE ABNORMAL [None]
  - DEHYDRATION [None]
  - DIARRHOEA [None]
  - MALAISE [None]
  - NAUSEA [None]
  - ORAL INTAKE REDUCED [None]
